FAERS Safety Report 4661567-1 (Version None)
Quarter: 2005Q2

REPORT INFORMATION
  Report Type: 
  Country: None (occurrence: None)
  Receive Date: 20050512
  Receipt Date: 20050512
  Transmission Date: 20051028
  Serious: Yes (Disabling)
  Sender: FDA-Public Use
  Company Number: None

PATIENT
  Age: 55 Year
  Sex: Male
  Weight: 83.4619 kg

DRUGS (2)
  1. ZOCOR [Suspect]
     Indication: ARTHRALGIA
     Dosage: 40 MG  ORALLY ORAL
     Route: 048
     Dates: start: 20041117, end: 20050415
  2. ZOCOR [Suspect]
     Indication: MYALGIA
     Dosage: 40 MG  ORALLY ORAL
     Route: 048
     Dates: start: 20041117, end: 20050415

REACTIONS (4)
  - ARTHRALGIA [None]
  - MALAISE [None]
  - MEMORY IMPAIRMENT [None]
  - MYALGIA [None]
